FAERS Safety Report 5480450-5 (Version None)
Quarter: 2007Q4

REPORT INFORMATION
  Report Type: 
  Country: None (occurrence: None)
  Receive Date: 20071009
  Receipt Date: 20071005
  Transmission Date: 20080405
  Serious: Yes (Hospitalization)
  Sender: FDA-Public Use
  Company Number: B0481438A

PATIENT
  Age: 68 Year
  Sex: Female
  Weight: 53 kg

DRUGS (16)
  1. ARIXTRA [Suspect]
     Indication: THROMBOSIS PROPHYLAXIS
     Dosage: 2.5MG PER DAY
     Route: 058
     Dates: start: 20070707, end: 20070710
  2. RISEDRONATE SODIUM [Concomitant]
     Indication: OSTEOPOROSIS
     Dosage: 2.5MG PER DAY
     Route: 048
     Dates: start: 20060330
  3. HYPEN [Concomitant]
     Indication: PROCEDURAL PAIN
     Dosage: 400MG PER DAY
     Route: 048
     Dates: start: 20070707, end: 20070711
  4. MUCOSTA [Concomitant]
     Dosage: 200MG PER DAY
     Route: 048
     Dates: start: 20070707, end: 20070711
  5. FERROMIA [Concomitant]
     Route: 048
     Dates: start: 20070623, end: 20070809
  6. TARIVID [Concomitant]
     Indication: CONJUNCTIVITIS
     Route: 031
     Dates: start: 20070702
  7. RHYTHMY [Concomitant]
     Indication: INSOMNIA
     Route: 048
     Dates: start: 20070705
  8. INDOMETHACIN [Concomitant]
     Indication: PAIN
     Dosage: 25MG PER DAY
     Route: 054
     Dates: start: 20070706, end: 20070707
  9. HARTMANNS [Concomitant]
     Dosage: 2000ML PER DAY
     Route: 042
     Dates: start: 20070706, end: 20070706
  10. SEISHOKU [Concomitant]
     Indication: PAIN
     Dosage: 110ML PER DAY
     Route: 042
     Dates: start: 20070706, end: 20070706
  11. FAMOTIDINE [Concomitant]
     Dosage: 20MG PER DAY
     Route: 042
     Dates: start: 20070706, end: 20070706
  12. UNKNOWN DRUG [Concomitant]
     Indication: INFECTION PROPHYLAXIS
     Route: 042
     Dates: start: 20070706, end: 20070707
  13. ROPION [Concomitant]
     Indication: PAIN
     Route: 042
     Dates: start: 20070706, end: 20070706
  14. SOLDEM 3A [Concomitant]
     Dosage: 500ML PER DAY
     Route: 042
     Dates: start: 20070706, end: 20070706
  15. UNKNOWN DRUG [Concomitant]
     Dosage: 1SUP PER DAY
     Route: 054
     Dates: start: 20070706, end: 20070706
  16. UNKNOWN DRUG [Concomitant]

REACTIONS (3)
  - POST PROCEDURAL HAEMATOMA [None]
  - POST PROCEDURAL SWELLING [None]
  - WOUND COMPLICATION [None]
